FAERS Safety Report 5511170-6 (Version None)
Quarter: 2007Q4

REPORT INFORMATION
  Report Type: 
  Country: None (occurrence: None)
  Receive Date: 20071109
  Receipt Date: 20071102
  Transmission Date: 20080405
  Serious: Yes (Other)
  Sender: FDA-Public Use
  Company Number: US-ASTRAZENECA-2006UW15422

PATIENT
  Age: 59 Year
  Sex: Female

DRUGS (3)
  1. ARIMIDEX [Suspect]
     Indication: BREAST CANCER FEMALE
     Route: 048
     Dates: start: 20050101
  2. BONIVA [Suspect]
  3. FOSAMAX [Concomitant]

REACTIONS (5)
  - ABASIA [None]
  - FATIGUE [None]
  - OSTEOPOROSIS [None]
  - PAIN [None]
  - TRIGGER FINGER [None]
